FAERS Safety Report 7315700-3 (Version None)
Quarter: 2011Q1

REPORT INFORMATION
  Report Type: 
  Country: None (occurrence: None)
  Receive Date: 20110225
  Receipt Date: 20110126
  Transmission Date: 20110831
  Serious: Yes (Hospitalization)
  Sender: FDA-Public Use
  Company Number: US-BAYER-2011-009932

PATIENT
  Sex: Female

DRUGS (1)
  1. MIRENA [Suspect]
     Indication: CONTRACEPTION
     Dosage: DAILY DOSE 20 ?G/D
     Dates: start: 20080616, end: 20101124

REACTIONS (3)
  - THROMBOTIC THROMBOCYTOPENIC PURPURA [None]
  - PLATELET COUNT DECREASED [None]
  - FATIGUE [None]
